FAERS Safety Report 5988492-8 (Version None)
Quarter: 2008Q4

REPORT INFORMATION
  Report Type: 
  Country: None (occurrence: None)
  Receive Date: 20081208
  Receipt Date: 20081208
  Transmission Date: 20090506
  Serious: Yes (Other)
  Sender: FDA-Public Use
  Company Number: None

PATIENT
  Age: 56 Year
  Sex: Female
  Weight: 92.9874 kg

DRUGS (1)
  1. JANUVIA [Suspect]
     Indication: TYPE 2 DIABETES MELLITUS
     Dosage: 1 BID PO
     Route: 048
     Dates: start: 20070701, end: 20081101

REACTIONS (3)
  - CHEST DISCOMFORT [None]
  - DYSPNOEA EXERTIONAL [None]
  - EXERCISE TOLERANCE DECREASED [None]
